FAERS Safety Report 24084764 (Version 1)
Quarter: 2024Q3

REPORT INFORMATION
  Report Type: Spontaneous
  Country: EG (occurrence: EG)
  Receive Date: 20240712
  Receipt Date: 20240712
  Transmission Date: 20241016
  Serious: Yes (Other)
  Sender: PFIZER
  Company Number: EG-PFIZER INC-PV202400089858

PATIENT
  Age: 60 Year
  Sex: Female
  Weight: 75 kg

DRUGS (2)
  1. CARBOPLATIN [Suspect]
     Active Substance: CARBOPLATIN
     Dosage: 565 MG, EVERY 3 WEEKS, START DATE IS CYCLE 2,D1
     Route: 042
     Dates: start: 20240423
  2. PACLITAXEL [Suspect]
     Active Substance: PACLITAXEL
     Dosage: 139.2 MG, WEEKLY, START DATE IS CYCLE 2 - WEEK2
     Route: 042
     Dates: start: 20240430

REACTIONS (2)
  - Neutropenia [Unknown]
  - White blood cell count decreased [Unknown]

NARRATIVE: CASE EVENT DATE: 20240507
